FAERS Safety Report 24557673 (Version 2)
Quarter: 2024Q4

REPORT INFORMATION
  Report Type: Spontaneous
  Country: FR (occurrence: FR)
  Receive Date: 20241028
  Receipt Date: 20241031
  Transmission Date: 20250115
  Serious: No
  Sender: NOVARTIS
  Company Number: FR-002147023-NVSC2024FR207856

PATIENT
  Age: 81 Year
  Sex: Male

DRUGS (2)
  1. GLYCOPYRRONIUM\INDACATEROL [Suspect]
     Active Substance: GLYCOPYRRONIUM\INDACATEROL
     Indication: Product used for unknown indication
     Dosage: 1 DOSAGE FORM, QD (1 CAPSULE IN THE MORNING)
     Route: 055
  2. GLYCOPYRRONIUM\INDACATEROL [Suspect]
     Active Substance: GLYCOPYRRONIUM\INDACATEROL
     Dosage: 1 DOSAGE FORM, QD (1 CAPSULE IN THE MORNING) (AROUND 18 OCT 17 OCT 2024)
     Route: 048

REACTIONS (2)
  - Diarrhoea [Unknown]
  - Incorrect route of product administration [Unknown]

NARRATIVE: CASE EVENT DATE: 20241001
